FAERS Safety Report 8905220 (Version 3)
Quarter: 2013Q1

REPORT INFORMATION
  Report Type: Other
  Country: US (occurrence: US)
  Receive Date: 20121113
  Receipt Date: 20130201
  Transmission Date: 20140127
  Serious: Yes (Death)
  Sender: FDA-Public Use
  Company Number: US-SHIRE-ALL1-2012-05525

PATIENT
  Age: 54 Year
  Sex: Male

DRUGS (2)
  1. FOSRENOL [Suspect]
     Indication: RENAL FAILURE CHRONIC
     Dosage: 1000 MG, OTHER(5 PER DAY WITH MEALS AND SNACKS)
     Route: 048
  2. FOSRENOL [Suspect]
     Indication: HYPERPHOSPHATAEMIA

REACTIONS (1)
  - Myocardial infarction [Fatal]
